FAERS Safety Report 15440058 (Version 1)
Quarter: 2018Q3

REPORT INFORMATION
  Report Type: Spontaneous
  Country: US (occurrence: US)
  Receive Date: 20180925
  Receipt Date: 20180925
  Transmission Date: 20181010
  Serious: No
  Sender: FDA-Public Use
  Company Number: None

PATIENT
  Age: 25 Year
  Sex: Female
  Weight: 56.25 kg

DRUGS (1)
  1. BENADRYL [Suspect]
     Active Substance: DIPHENHYDRAMINE HYDROCHLORIDE
     Indication: HYPERSENSITIVITY
     Dosage: ?          QUANTITY:.5 TABLET(S);?
     Route: 048

REACTIONS (8)
  - Heart rate increased [None]
  - Fatigue [None]
  - Throat tightness [None]
  - Insomnia [None]
  - Anxiety [None]
  - Nausea [None]
  - Formication [None]
  - Muscle tightness [None]

NARRATIVE: CASE EVENT DATE: 20180924
